FAERS Safety Report 25080739 (Version 1)
Quarter: 2025Q1

REPORT INFORMATION
  Report Type: Spontaneous
  Country: DE (occurrence: DE)
  Receive Date: 20250315
  Receipt Date: 20250315
  Transmission Date: 20250409
  Serious: Yes (Hospitalization, Other)
  Sender: AUROBINDO
  Company Number: DE-JNJFOC-20250220803

PATIENT
  Age: 73 Year
  Sex: Male
  Weight: 73 kg

DRUGS (10)
  1. MELPHALAN [Suspect]
     Active Substance: MELPHALAN
     Indication: Plasma cell myeloma
     Route: 065
     Dates: start: 20241206
  2. TALQUETAMAB [Suspect]
     Active Substance: TALQUETAMAB
     Indication: Plasma cell myeloma
     Route: 065
     Dates: start: 20240927
  3. TALQUETAMAB [Suspect]
     Active Substance: TALQUETAMAB
     Route: 065
     Dates: start: 20240929
  4. TALQUETAMAB [Suspect]
     Active Substance: TALQUETAMAB
     Route: 065
     Dates: start: 20241001
  5. TALQUETAMAB [Suspect]
     Active Substance: TALQUETAMAB
     Route: 065
     Dates: start: 20241008
  6. TALQUETAMAB [Suspect]
     Active Substance: TALQUETAMAB
     Route: 065
     Dates: start: 20241016
  7. TALQUETAMAB [Suspect]
     Active Substance: TALQUETAMAB
     Route: 065
     Dates: start: 20241023
  8. TALQUETAMAB [Suspect]
     Active Substance: TALQUETAMAB
     Route: 065
     Dates: start: 20241030
  9. TALQUETAMAB [Suspect]
     Active Substance: TALQUETAMAB
     Route: 065
     Dates: start: 20241108
  10. TALQUETAMAB [Suspect]
     Active Substance: TALQUETAMAB
     Route: 065
     Dates: start: 20241114

REACTIONS (4)
  - Pneumonia [Recovered/Resolved]
  - Cytokine release syndrome [Recovered/Resolved]
  - Oedema peripheral [Recovering/Resolving]
  - Urinary tract infection [Recovered/Resolved]

NARRATIVE: CASE EVENT DATE: 20240929
